FAERS Safety Report 14168256 (Version 1)
Quarter: 2017Q4

REPORT INFORMATION
  Report Type: Spontaneous
  Country: US (occurrence: US)
  Receive Date: 20171107
  Receipt Date: 20171107
  Transmission Date: 20180321
  Serious: No
  Sender: FDA-Public Use
  Company Number: US-SA-2017SA106969

PATIENT
  Sex: Male

DRUGS (2)
  1. SOLOSTAR [Concomitant]
     Active Substance: DEVICE
     Route: 065
  2. TOUJEO [Suspect]
     Active Substance: INSULIN GLARGINE
     Indication: DIABETES MELLITUS
     Route: 051

REACTIONS (4)
  - Skin irritation [Unknown]
  - Product use issue [Unknown]
  - Rash [Unknown]
  - Injection site swelling [Unknown]

NARRATIVE: CASE EVENT DATE: 2017
